FAERS Safety Report 20319499 (Version 3)
Quarter: 2022Q4

REPORT INFORMATION
  Report Type: Report from Study
  Country: BR (occurrence: BR)
  Receive Date: 20220110
  Receipt Date: 20221012
  Transmission Date: 20230112
  Serious: Yes (Other)
  Sender: FDA-Public Use
  Company Number: BR-JNJFOC-20220106039

PATIENT
  Sex: Female
  Weight: 91 kg

DRUGS (2)
  1. INFLIXIMAB [Suspect]
     Active Substance: INFLIXIMAB
     Indication: Rheumatoid arthritis
     Dosage: VIAL, 100 MG
     Route: 041
     Dates: start: 20190401, end: 202103
  2. REMICADE [Suspect]
     Active Substance: INFLIXIMAB
     Indication: Rheumatoid arthritis
     Route: 041
     Dates: start: 20190401, end: 20190916

REACTIONS (3)
  - Tuberculosis [Unknown]
  - COVID-19 [Unknown]
  - Pulmonary mass [Unknown]
